FAERS Safety Report 8074051-2 (Version None)
Quarter: 2012Q1

REPORT INFORMATION
  Report Type: 
  Country: None (occurrence: None)
  Receive Date: 20120119
  Receipt Date: 20120111
  Transmission Date: 20120608
  Serious: Yes (Life-Threatening, Hospitalization)
  Sender: FDA-Public Use
  Company Number: WAES 1201USA01452

PATIENT
  Age: 45 Year
  Sex: Male

DRUGS (10)
  1. RANITIDINE [Concomitant]
  2. IMODIUM [Concomitant]
  3. WELLBUTRIN [Concomitant]
  4. ASACOL [Concomitant]
  5. TAB INSENTRESS (RALTEGRAVIR POTASSIUM) [Suspect]
     Route: 048
  6. TRUVADA [Concomitant]
  7. VALTREX [Concomitant]
  8. CYANOCOBALAMIN [Concomitant]
  9. REMERON [Suspect]
     Dosage: 30 MG/PRN
     Route: 048
  10. KETOCONAZOLE [Concomitant]

REACTIONS (5)
  - MULTIPLE DRUG OVERDOSE [None]
  - RESPIRATORY FAILURE [None]
  - SUICIDE ATTEMPT [None]
  - POST PROCEDURAL PNEUMONIA [None]
  - LOSS OF CONSCIOUSNESS [None]
